FAERS Safety Report 8406947-3 (Version None)
Quarter: 2012Q2

REPORT INFORMATION
  Report Type: 
  Country: None (occurrence: None)
  Receive Date: 20120529
  Receipt Date: 20050301
  Transmission Date: 20120825
  Serious: Yes (Death, Hospitalization, Disabling, Other)
  Sender: FDA-Public Use
  Company Number: 02100-JPN-05-0078

PATIENT
  Age: 89 Year
  Sex: Male

DRUGS (7)
  1. MUCOSOLVAN (AMBROXOL HYDROCHLORIDE) [Concomitant]
  2. DEPAKENE R (SODIUM VALPROATE) [Concomitant]
  3. ASPIRIN [Concomitant]
  4. PLETAL [Suspect]
     Indication: CEREBRAL INFARCTION
     Dosage: 100 MG, BID, ORAL
     Route: 048
     Dates: start: 20041229, end: 20050123
  5. ISOSORBIDE MONONITRATE [Concomitant]
  6. AMLODIN (AMLOIDPINE BESILATE) [Concomitant]
  7. LISINOPRIL [Concomitant]

REACTIONS (6)
  - HAEMORRHAGIC DIATHESIS [None]
  - PNEUMONIA [None]
  - EPILEPSY [None]
  - DISSEMINATED INTRAVASCULAR COAGULATION [None]
  - HAEMORRHAGE SUBCUTANEOUS [None]
  - CARDIAC FAILURE [None]
